FAERS Safety Report 5796864-X (Version None)
Quarter: 2008Q3

REPORT INFORMATION
  Report Type: 
  Country: None (occurrence: None)
  Receive Date: 20080701
  Receipt Date: 20080619
  Transmission Date: 20090109
  Serious: Yes (Hospitalization)
  Sender: FDA-Public Use
  Company Number: CA-VALEANT-2006VX001652

PATIENT
  Age: 44 Year
  Sex: Female
  Weight: 98 kg

DRUGS (7)
  1. CESAMET [Suspect]
     Route: 048
     Dates: start: 20050805, end: 20050805
  2. ESCITALOPRAM [Concomitant]
     Route: 048
  3. TRAZODONE HCL [Concomitant]
     Route: 048
  4. NASONEX [Concomitant]
     Route: 065
  5. PRAVASTATIN SODIUM [Concomitant]
     Route: 065
  6. RANITIDINE HCL [Concomitant]
     Route: 048
  7. ALBUTEROL [Concomitant]
     Route: 065

REACTIONS (8)
  - ASTHENIA [None]
  - BURNING SENSATION [None]
  - CONVULSION [None]
  - DYSKINESIA [None]
  - LOSS OF CONSCIOUSNESS [None]
  - MYOCLONUS [None]
  - OFF LABEL USE [None]
  - TREMOR [None]
